FAERS Safety Report 5260941-2 (Version None)
Quarter: 2007Q1

REPORT INFORMATION
  Report Type: 
  Country: None (occurrence: None)
  Receive Date: 20070309
  Receipt Date: 20070301
  Transmission Date: 20070707
  Serious: Yes (Hospitalization)
  Sender: FDA-Public Use
  Company Number: US-SHR-US-2007-007417

PATIENT
  Age: 68 Year
  Sex: Male

DRUGS (1)
  1. BETASERON [Suspect]
     Dosage: 8 MIU, EVERY 2D
     Route: 058
     Dates: start: 19990210

REACTIONS (2)
  - CEREBROVASCULAR ACCIDENT [None]
  - INJECTION SITE PAIN [None]
